FAERS Safety Report 6020457-2 (Version None)
Quarter: 2008Q4

REPORT INFORMATION
  Report Type: 
  Country: None (occurrence: None)
  Receive Date: 20081226
  Receipt Date: 20080425
  Transmission Date: 20090506
  Serious: Yes (Hospitalization)
  Sender: FDA-Public Use
  Company Number: KR-ROCHE-557211

PATIENT
  Sex: Male
  Weight: 80 kg

DRUGS (17)
  1. CAPECITABINE [Suspect]
     Indication: GASTRIC CANCER
     Dosage: UNIT REPORTED AS 2000MG , FREQUENCY D1-14Q3W BID AND ROUTE AS BID PO.
     Route: 048
     Dates: start: 20080307
  2. BLINDED BEVACIZUMAB [Suspect]
     Indication: GASTRIC CANCER
     Dosage: DOSE BLINDED, DOSAGE FORM REPORTED AS INFUSION AND FREQUENCY AS D1Q3W AND ROUTE AS BID PO
     Route: 042
     Dates: start: 20080307
  3. CISPLATIN [Suspect]
     Indication: GASTRIC CANCER
     Dosage: FREQUENCY REPORTED AS D1Q3W. DOSAGE FORM AS INFUSION.UNITS AS 155 MG
     Route: 042
     Dates: start: 20080307
  4. LANSOPRAZOLE [Concomitant]
     Dates: start: 20080311, end: 20080322
  5. HEMOCONTIN [Concomitant]
     Dosage: TTD REPORTED AS ^ 1T^
     Dates: start: 20080312, end: 20080322
  6. SUCRALFATE [Concomitant]
     Dosage: DRUG NAME REPORTED AS SUCRALFAGE SUSPENSION
     Dates: start: 20080311, end: 20080322
  7. NICORANDIL [Concomitant]
     Dates: start: 20040615, end: 20080322
  8. ATACAND HCT [Concomitant]
     Dosage: TDD REPORTED AS ^1T^
     Dates: start: 20080315, end: 20080322
  9. TRIMETAZIDINE HCL [Concomitant]
     Dates: start: 20080315, end: 20080322
  10. METFORMIN HCL [Concomitant]
     Dates: start: 20080315, end: 20080322
  11. ASPIRIN [Concomitant]
     Dates: start: 20080315, end: 20080322
  12. GINKGO BILOBA [Concomitant]
     Dosage: DRUG NAME REPORTED AS GINKGO BILOBA EXT.
     Dates: start: 20080311, end: 20080323
  13. ALLEGRA D 24 HOUR [Concomitant]
     Dosage: TTD REPORTED AS ^2T^
     Dates: start: 20080311, end: 20080322
  14. MEGESTROL ACETATE [Concomitant]
     Dates: start: 20080311, end: 20080323
  15. COUGH SYRUP [Concomitant]
     Dates: start: 20080311, end: 20080323
  16. BROMHEXINE HCL [Concomitant]
     Dates: start: 20080311, end: 20080323
  17. POLYSTYRENE SULFONATE [Concomitant]
     Dosage: DRUG NAME REPORTED AS POLYSTYRENE SULFONATE CALCIUM.
     Dates: start: 20080311, end: 20080323

REACTIONS (1)
  - RENAL FAILURE ACUTE [None]
